FAERS Safety Report 6822072-7 (Version None)
Quarter: 2010Q3

REPORT INFORMATION
  Report Type: 
  Country: None (occurrence: None)
  Receive Date: 20100708
  Receipt Date: 20100625
  Transmission Date: 20110219
  Serious: Yes (Other)
  Sender: FDA-Public Use
  Company Number: IT-JNJFOC-20100608155

PATIENT
  Sex: Male

DRUGS (8)
  1. DAKTARIN [Suspect]
     Route: 048
  2. DAKTARIN [Suspect]
     Indication: ORAL FUNGAL INFECTION
     Route: 048
  3. SINTROM [Interacting]
     Indication: CARDIAC VALVE PROSTHESIS USER
     Route: 048
  4. ZYLORIC [Concomitant]
     Route: 065
  5. ESKIM [Concomitant]
     Route: 065
  6. LIBRADIN [Concomitant]
     Route: 065
  7. ALPHEUS [Concomitant]
     Route: 065
  8. LOSAPREX [Concomitant]
     Route: 065

REACTIONS (2)
  - DRUG INTERACTION [None]
  - INTERNATIONAL NORMALISED RATIO INCREASED [None]
